FAERS Safety Report 8677920 (Version 2)
Quarter: 2013Q2

REPORT INFORMATION
  Report Type: Spontaneous
  Country: GB (occurrence: GB)
  Receive Date: 20120723
  Receipt Date: 20130418
  Transmission Date: 20140414
  Serious: Yes (Death, Hospitalization, Other)
  Sender: FDA-Public Use
  Company Number: GB-ROCHE-1087299

PATIENT
  Sex: Male

DRUGS (1)
  1. ROACTEMRA [Suspect]
     Indication: RHEUMATOID ARTHRITIS
     Route: 065

REACTIONS (5)
  - Death [Fatal]
  - Sepsis [Unknown]
  - Pulmonary fibrosis [Unknown]
  - Multi-organ failure [Unknown]
  - Acute respiratory distress syndrome [Unknown]
